FAERS Safety Report 6369585-2 (Version None)
Quarter: 2009Q3

REPORT INFORMATION
  Report Type: 
  Country: None (occurrence: None)
  Receive Date: 20090923
  Receipt Date: 20090911
  Transmission Date: 20100115
  Serious: No
  Sender: FDA-Public Use
  Company Number: PHHY2009JP27704

PATIENT
  Sex: Female

DRUGS (6)
  1. TASIGNA [Suspect]
     Indication: CHRONIC MYELOID LEUKAEMIA
     Dosage: 400 MG/DAY
     Route: 048
     Dates: start: 20090624, end: 20090703
  2. TRIAZOLAM [Suspect]
     Dosage: 0.125 MG
     Route: 048
     Dates: start: 20090501, end: 20090701
  3. RENIVACE [Concomitant]
     Dosage: 5 MG, UNK
     Route: 048
     Dates: start: 20090624
  4. THIATON [Concomitant]
     Dosage: 30 MG, UNK
     Route: 048
     Dates: start: 20090624
  5. MUCOSTA [Concomitant]
     Dosage: 300 MG, UNK
     Route: 048
     Dates: start: 20090624
  6. MAGNESIUM OXIDE [Concomitant]
     Dosage: 0.6 G, UNK
     Route: 048
     Dates: start: 20090624

REACTIONS (2)
  - ELECTROCARDIOGRAM QT PROLONGED [None]
  - LIVER DISORDER [None]
